FAERS Safety Report 25879310 (Version 1)
Quarter: 2025Q4

REPORT INFORMATION
  Report Type: Report from Study
  Country: CA (occurrence: CA)
  Receive Date: 20251003
  Receipt Date: 20251003
  Transmission Date: 20260117
  Serious: Yes (Other)
  Sender: UCB
  Company Number: CA-UCBSA-2025061407

PATIENT
  Sex: Female

DRUGS (5)
  1. CERTOLIZUMAB PEGOL [Suspect]
     Active Substance: CERTOLIZUMAB PEGOL
     Indication: Rheumatoid arthritis
     Dosage: 200 MILLIGRAM, EV 2 WEEKS(QOW)
     Route: 058
     Dates: start: 20221012
  2. SULFASALAZINE [Concomitant]
     Active Substance: SULFASALAZINE
     Indication: Product used for unknown indication
     Dosage: UNK
  3. HYDROXYCHLOROQUINE SULFATE [Concomitant]
     Active Substance: HYDROXYCHLOROQUINE SULFATE
     Indication: Product used for unknown indication
     Dosage: UNK
  4. ASCORBIC ACID [Concomitant]
     Active Substance: ASCORBIC ACID
     Indication: Product used for unknown indication
     Dosage: UNK
  5. VITAMIN D NOS [Concomitant]
     Active Substance: CHOLECALCIFEROL\ERGOCALCIFEROL
     Indication: Product used for unknown indication
     Dosage: UNK

REACTIONS (5)
  - Rheumatoid arthritis [Unknown]
  - Eye inflammation [Unknown]
  - Sacral pain [Unknown]
  - Photophobia [Unknown]
  - Rash [Unknown]

NARRATIVE: CASE EVENT DATE: 20250101
